FAERS Safety Report 15588046 (Version 3)
Quarter: 2019Q2

REPORT INFORMATION
  Report Type: Spontaneous
  Country: IT (occurrence: IT)
  Receive Date: 20181105
  Receipt Date: 20190401
  Transmission Date: 20190711
  Serious: Yes (Other)
  Sender: FDA-Public Use
  Company Number: IT-ALLERGAN-1852067US

PATIENT
  Sex: Female

DRUGS (4)
  1. OZURDEX [Suspect]
     Active Substance: DEXAMETHASONE
     Indication: CYSTOID MACULAR OEDEMA
     Dosage: 0.7 MG, SINGLE
     Route: 031
     Dates: start: 201606, end: 201606
  2. OZURDEX [Suspect]
     Active Substance: DEXAMETHASONE
     Dosage: 0.7 MG, SINGLE
     Route: 031
     Dates: start: 201502, end: 201502
  3. OZURDEX [Suspect]
     Active Substance: DEXAMETHASONE
     Indication: RETINAL VEIN OCCLUSION
     Dosage: 0.7 MG, SINGLE
     Route: 031
     Dates: start: 201512, end: 201512
  4. OZURDEX [Suspect]
     Active Substance: DEXAMETHASONE
     Dosage: 0.7 MG, SINGLE
     Route: 031
     Dates: start: 201507, end: 201507

REACTIONS (3)
  - Macular hole [Recovered/Resolved]
  - Cyst rupture [Recovered/Resolved]
  - Retinal haemorrhage [Recovered/Resolved]

NARRATIVE: CASE EVENT DATE: 201609
